FAERS Safety Report 5802572-9 (Version None)
Quarter: 2008Q3

REPORT INFORMATION
  Report Type: 
  Country: None (occurrence: None)
  Receive Date: 20080708
  Receipt Date: 20080702
  Transmission Date: 20090109
  Serious: Yes (Death)
  Sender: FDA-Public Use
  Company Number: PHHY2008JP12861

PATIENT
  Age: 71 Year
  Sex: Male

DRUGS (4)
  1. CYCLOSPORINE [Suspect]
     Indication: EPSTEIN-BARR VIRUS INFECTION
     Dosage: UNK
     Dates: start: 20070715
  2. CYCLOSPORINE [Suspect]
     Dosage: UNK
     Dates: start: 20070101
  3. PREDNISOLONE [Concomitant]
     Indication: EPSTEIN-BARR VIRUS INFECTION
     Dosage: UNK
     Dates: start: 20070715
  4. ETOPOSIDE [Concomitant]
     Indication: EPSTEIN-BARR VIRUS INFECTION

REACTIONS (4)
  - ASPERGILLOSIS [None]
  - CYTOMEGALOVIRUS INFECTION [None]
  - GASTRIC ULCER HAEMORRHAGE [None]
  - LYMPHADENOPATHY [None]
